FAERS Safety Report 9193064 (Version 1)
Quarter: 2013Q1

REPORT INFORMATION
  Report Type: Spontaneous
  Country: JP (occurrence: JP)
  Receive Date: 20130327
  Receipt Date: 20130327
  Transmission Date: 20140127
  Serious: Yes (Other)
  Sender: FDA-Public Use
  Company Number: JP-SANOFI-AVENTIS-200810865GDDC

PATIENT
  Age: 42 Year
  Sex: Female

DRUGS (5)
  1. ISONIAZID [Suspect]
     Indication: TUBERCULOSIS
  2. RIFAMPICIN [Suspect]
  3. PYRAZINAMIDE [Suspect]
     Indication: TUBERCULOSIS
  4. ETHAMBUTOL [Suspect]
     Indication: TUBERCULOSIS
  5. NO MENTION OF CONCOMITANT MEDICATIONS [Concomitant]

REACTIONS (1)
  - Neuropathy peripheral [Recovering/Resolving]
